FAERS Safety Report 12136870 (Version 1)
Quarter: 2016Q1

REPORT INFORMATION
  Report Type: Spontaneous
  Country: US (occurrence: US)
  Receive Date: 20160302
  Receipt Date: 20160302
  Transmission Date: 20160526
  Serious: No
  Sender: FDA-Public Use
  Company Number: US-MEDA-2016020062

PATIENT
  Age: 70 Year
  Sex: Male
  Weight: 91 kg

DRUGS (2)
  1. LISINOPRIL. [Concomitant]
     Active Substance: LISINOPRIL
     Indication: HYPERTENSION
  2. MUSE [Suspect]
     Active Substance: ALPROSTADIL
     Indication: ERECTILE DYSFUNCTION
     Route: 066
     Dates: start: 20160219

REACTIONS (5)
  - Penile pain [Recovered/Resolved]
  - Wrong technique in product usage process [Recovered/Resolved]
  - Dizziness [Recovered/Resolved]
  - Penile burning sensation [Recovered/Resolved]
  - Drug ineffective [Unknown]

NARRATIVE: CASE EVENT DATE: 20160219
